FAERS Safety Report 8958973 (Version 1)
Quarter: 2012Q4

REPORT INFORMATION
  Report Type: Report from Study
  Country: US (occurrence: US)
  Receive Date: 20121211
  Receipt Date: 20121211
  Transmission Date: 20130627
  Serious: No
  Sender: FDA-Public Use
  Company Number: US-VERTEX PHARMACEUTICALS INC.-2012-024128

PATIENT
  Age: 36 Year
  Sex: Male

DRUGS (1)
  1. INCIVEK [Suspect]
     Indication: HEPATITIS C
     Dosage: Dosage Form: Tablet
     Route: 048

REACTIONS (9)
  - Hyperhidrosis [Unknown]
  - Pain [Unknown]
  - Headache [Unknown]
  - Chills [Unknown]
  - Dizziness [Unknown]
  - Sleep disorder [Unknown]
  - Fatigue [Unknown]
  - Nausea [Unknown]
  - Rash [Unknown]
